FAERS Safety Report 9540511 (Version 2)
Quarter: 2013Q4

REPORT INFORMATION
  Report Type: Spontaneous
  Country: US (occurrence: US)
  Receive Date: 20130920
  Receipt Date: 20131014
  Transmission Date: 20140711
  Serious: Yes (Hospitalization)
  Sender: FDA-Public Use
  Company Number: US-B.I. PHARMACEUTICALS,INC./RIDGEFIELD-2013-BI-28852BP

PATIENT
  Age: 71 Year
  Sex: Male
  Weight: 90 kg

DRUGS (10)
  1. COMBIVENT [Suspect]
     Indication: ASTHMA
     Dosage: STRENGTH: 18 MCG / 103 MCG; DAILY DOSE: 72 MCG / 412 MCG
     Route: 055
     Dates: start: 2011, end: 20130828
  2. COMBIVENT [Suspect]
     Indication: EMPHYSEMA
     Dosage: STRENGTH: 18 MCG / 103 MCG; DAILY DOSE: 72 MCG / 412 MCG
     Route: 055
     Dates: start: 2010, end: 20130901
  3. COMBIVENT [Suspect]
     Indication: CHRONIC OBSTRUCTIVE PULMONARY DISEASE
  4. OMEPRAZOLE [Concomitant]
     Indication: GASTROOESOPHAGEAL REFLUX DISEASE
     Dosage: 20 MG
     Route: 048
     Dates: start: 2011
  5. VITAMIN B12 [Concomitant]
     Dosage: 1 ANZ
     Route: 048
     Dates: start: 2003
  6. VITAMIN C [Concomitant]
     Dosage: 500 MG
     Route: 048
     Dates: start: 2003
  7. VITAMIN D3 [Concomitant]
     Dosage: 1 ANZ
     Route: 048
     Dates: start: 2003
  8. TUMERIC [Concomitant]
     Dosage: 1 ANZ
     Route: 048
     Dates: start: 201308
  9. MULTIVITAMIN [Concomitant]
     Dosage: 1 ANZ
     Route: 048
     Dates: start: 2003
  10. COMBIVENT RESPIMAT [Concomitant]

REACTIONS (6)
  - Joint injury [Recovered/Resolved]
  - Arthritis [Recovered/Resolved]
  - Pollakiuria [Not Recovered/Not Resolved]
  - Oropharyngeal pain [Not Recovered/Not Resolved]
  - Dry mouth [Not Recovered/Not Resolved]
  - Off label use [Recovered/Resolved]
